FAERS Safety Report 19925596 (Version 2)
Quarter: 2022Q4

REPORT INFORMATION
  Report Type: Spontaneous
  Country: JP (occurrence: None)
  Receive Date: 20211006
  Receipt Date: 20221213
  Transmission Date: 20230113
  Serious: Yes (Hospitalization, Other)
  Sender: FDA-Public Use
  Company Number: 2021A754540

PATIENT
  Age: 77 Year
  Sex: Male
  Weight: 60 kg

DRUGS (10)
  1. TAGRISSO [Suspect]
     Active Substance: OSIMERTINIB
     Indication: Non-small cell lung cancer
     Route: 048
  2. CRESTOR [Suspect]
     Active Substance: ROSUVASTATIN CALCIUM
     Dosage: AFTER DINNER
     Route: 048
  3. ASPIRIN [Concomitant]
     Active Substance: ASPIRIN
     Dosage: AFTER BREAKFAST
     Route: 048
  4. ALLOPURINOL [Concomitant]
     Active Substance: ALLOPURINOL
     Dosage: AFTER BREAKFAST AND DINNER
     Route: 048
  5. ZOLPIDEM TARTRATE [Concomitant]
     Active Substance: ZOLPIDEM TARTRATE
     Dosage: BEFORE BEDTIME
     Route: 048
  6. CARVEDILOL [Concomitant]
     Active Substance: CARVEDILOL
     Dosage: AFTER BREAKFAST
     Route: 048
  7. SODIUM FERROUS CITRATE [Concomitant]
     Active Substance: SODIUM FERROUS CITRATE
     Dosage: AFTER BREAKFAST AND DINNER
     Route: 048
  8. INSULIN ASPART(GENETICAL RECOMBINATION) [Concomitant]
     Dosage: 10 UNITS IN THE MORNING, 18 UNITS IN DAYTIME, AND 12 UNITS IN THE EVENING
     Route: 065
  9. FUROSEMIDE [Concomitant]
     Active Substance: FUROSEMIDE
     Dosage: NUMBER OF SEPARATE DOSAGES UNKNOWN
     Route: 065
  10. TOLVAPTAN [Concomitant]
     Active Substance: TOLVAPTAN
     Dosage: NUMBER OF SEPARATE DOSAGES UNKNOWN
     Route: 065

REACTIONS (8)
  - Diabetic nephropathy [Unknown]
  - Renal tubular disorder [Unknown]
  - Glomerulonephritis acute [Recovering/Resolving]
  - Focal segmental glomerulosclerosis [Unknown]
  - Thrombosis [Unknown]
  - Emphysema [Unknown]
  - Lymphadenopathy [Unknown]
  - Pleural effusion [Unknown]
